FAERS Safety Report 17946671 (Version 1)
Quarter: 2020Q2

REPORT INFORMATION
  Report Type: Spontaneous
  Country: US (occurrence: US)
  Receive Date: 20200625
  Receipt Date: 20200625
  Transmission Date: 20200714
  Serious: Yes (Hospitalization)
  Sender: FDA-Public Use
  Company Number: None

PATIENT
  Age: 63 Year
  Sex: Female
  Weight: 51.8 kg

DRUGS (1)
  1. METHOTREXATE. [Suspect]
     Active Substance: METHOTREXATE
     Dates: end: 20200601

REACTIONS (10)
  - Minimal residual disease [None]
  - Symptom recurrence [None]
  - Pancytopenia [None]
  - Headache [None]
  - Ejection fraction decreased [None]
  - General physical health deterioration [None]
  - Nausea [None]
  - Vomiting [None]
  - Abdominal pain [None]
  - Acute kidney injury [None]

NARRATIVE: CASE EVENT DATE: 20200613
